FAERS Safety Report 4312984-0 (Version None)
Quarter: 2004Q1

REPORT INFORMATION
  Report Type: 
  Country: None (occurrence: None)
  Receive Date: 20040224
  Receipt Date: 20040217
  Transmission Date: 20041129
  Serious: Yes (Hospitalization)
  Sender: FDA-Public Use
  Company Number: 2004-00546

PATIENT
  Age: 69 Year
  Sex: Male

DRUGS (4)
  1. IMMUCYST (BCG - IT (CONNAUGHT) ), AVENTIS PASTEUR LTD. [Suspect]
     Indication: BLADDER CANCER
     Dosage: 81.0 MG (81.0 MG) I.VES., BLADDER
     Route: 042
     Dates: start: 20031215
  2. ATENOLOL [Concomitant]
  3. THYROXINE [Concomitant]
  4. AMLODIPINE [Concomitant]

REACTIONS (1)
  - ARTHRITIS REACTIVE [None]
